FAERS Safety Report 14014310 (Version 3)
Quarter: 2017Q4

REPORT INFORMATION
  Report Type: Spontaneous
  Country: US (occurrence: US)
  Receive Date: 20170927
  Receipt Date: 20171208
  Transmission Date: 20180321
  Serious: Yes (Other)
  Sender: FDA-Public Use
  Company Number: US-AMGEN-USASP2017109597

PATIENT
  Age: 71 Year
  Sex: Female

DRUGS (1)
  1. PROLIA [Suspect]
     Active Substance: DENOSUMAB
     Indication: OSTEOPOROSIS POSTMENOPAUSAL
     Dosage: 60 MG, UNK
     Route: 065
     Dates: start: 20170511, end: 20170515

REACTIONS (21)
  - Pain [Not Recovered/Not Resolved]
  - Influenza like illness [Recovered/Resolved]
  - Myalgia [Unknown]
  - Exostosis [Unknown]
  - Muscle spasms [Not Recovered/Not Resolved]
  - Urinary tract disorder [Not Recovered/Not Resolved]
  - Feeling abnormal [Unknown]
  - Inappropriate schedule of drug administration [Unknown]
  - Insomnia [Not Recovered/Not Resolved]
  - Mouth cyst [Not Recovered/Not Resolved]
  - Musculoskeletal pain [Recovering/Resolving]
  - Palpitations [Unknown]
  - Bone pain [Unknown]
  - Headache [Recovering/Resolving]
  - Abdominal pain upper [Not Recovered/Not Resolved]
  - Gingival pain [Unknown]
  - Pain in extremity [Not Recovered/Not Resolved]
  - Nausea [Not Recovered/Not Resolved]
  - Gait disturbance [Not Recovered/Not Resolved]
  - Toothache [Unknown]
  - Loss of personal independence in daily activities [Unknown]

NARRATIVE: CASE EVENT DATE: 2017
